FAERS Safety Report 16876758 (Version 4)
Quarter: 2019Q4

REPORT INFORMATION
  Report Type: Spontaneous
  Country: IT (occurrence: IT)
  Receive Date: 20191002
  Receipt Date: 20191226
  Transmission Date: 20200122
  Serious: Yes (Hospitalization)
  Sender: FDA-Public Use
  Company Number: IT-ACCORD-156223

PATIENT
  Age: 73 Year
  Sex: Female

DRUGS (3)
  1. DEXAMETHASONE PHOSPHATE HOSPIRA [Concomitant]
     Active Substance: DEXAMETHASONE PHOSPHATE
     Indication: SMALL CELL LUNG CANCER
     Dosage: STRENGTH 4 MG / ML
     Route: 042
     Dates: start: 20190917, end: 20190917
  2. ETOPOSIDE. [Suspect]
     Active Substance: ETOPOSIDE
     Indication: SMALL CELL LUNG CANCER EXTENSIVE STAGE
     Route: 042
     Dates: start: 20190917, end: 20190917
  3. ONDANSETRON KABI [Concomitant]
     Active Substance: ONDANSETRON
     Indication: SMALL CELL LUNG CANCER
     Dosage: STRENGTH 2 MG / ML
     Route: 042
     Dates: start: 20190917, end: 20190917

REACTIONS (4)
  - Bronchospasm [Recovering/Resolving]
  - Respiratory failure [Recovering/Resolving]
  - Tachycardia [Recovering/Resolving]
  - Hypertension [Recovering/Resolving]

NARRATIVE: CASE EVENT DATE: 20190917
